FAERS Safety Report 7344208-4 (Version None)
Quarter: 2011Q1

REPORT INFORMATION
  Report Type: 
  Country: None (occurrence: None)
  Receive Date: 20110310
  Receipt Date: 20100818
  Transmission Date: 20110831
  Serious: No
  Sender: FDA-Public Use
  Company Number: A0876683A

PATIENT
  Age: 42 Year
  Sex: Male

DRUGS (2)
  1. NICORETTE [Suspect]
  2. NICOTINE POLACRILEX [Suspect]

REACTIONS (4)
  - JAW DISORDER [None]
  - PRODUCT QUALITY ISSUE [None]
  - DIARRHOEA [None]
  - STOMATITIS [None]
